FAERS Safety Report 5801836-2 (Version None)
Quarter: 2008Q3

REPORT INFORMATION
  Report Type: 
  Country: None (occurrence: None)
  Receive Date: 20080707
  Receipt Date: 20080623
  Transmission Date: 20090109
  Serious: Yes (Hospitalization)
  Sender: FDA-Public Use
  Company Number: FR-MERCK-0805FRA00060

PATIENT
  Age: 78 Year
  Sex: Female

DRUGS (12)
  1. NOROXIN [Suspect]
     Indication: URINARY TRACT INFECTION
     Route: 048
     Dates: start: 20080331, end: 20080409
  2. AMOXICILLIN AND CLAVULANATE POTASSIUM [Suspect]
     Indication: URINARY TRACT INFECTION
     Route: 048
     Dates: start: 20080404, end: 20080405
  3. PREGABALIN [Suspect]
     Indication: PARAESTHESIA
     Route: 048
     Dates: start: 20080326, end: 20080409
  4. ACETAMINOPHEN [Concomitant]
     Indication: PYREXIA
     Route: 042
     Dates: start: 20080404, end: 20080407
  5. POTASSIUM CHLORIDE [Concomitant]
     Route: 048
  6. CLONAZEPAM [Concomitant]
     Indication: PARAESTHESIA
     Route: 048
     Dates: start: 20080328
  7. PREDNISONE [Concomitant]
     Indication: SJOGREN'S SYNDROME
     Route: 048
     Dates: start: 20080301
  8. FOLIC ACID [Concomitant]
     Route: 048
  9. RAMIPRIL [Concomitant]
     Indication: HYPERTENSION
     Route: 048
  10. ASPIRIN LYSINE [Concomitant]
     Route: 048
  11. REPAGLINIDE [Concomitant]
     Indication: TYPE 2 DIABETES MELLITUS
     Route: 048
     Dates: start: 20080405
  12. ACETAMINOPHEN [Concomitant]
     Route: 048
     Dates: start: 20080306, end: 20080403

REACTIONS (3)
  - DISSOCIATION [None]
  - ERYTHEMA [None]
  - RASH MORBILLIFORM [None]
